FAERS Safety Report 9134977 (Version 3)
Quarter: 2013Q2

REPORT INFORMATION
  Report Type: Spontaneous
  Country: JP (occurrence: JP)
  Receive Date: 20130304
  Receipt Date: 20130418
  Transmission Date: 20140414
  Serious: Yes (Death, Life-Threatening, Disabling)
  Sender: FDA-Public Use
  Company Number: JP-PFIZER INC-2013072231

PATIENT
  Age: 89 Year
  Sex: Male
  Weight: 59 kg

DRUGS (12)
  1. VFEND [Suspect]
     Indication: ASPERGILLUS INFECTION
     Dosage: 300 MG, 2X/DAY
     Route: 048
     Dates: start: 20130216, end: 20130216
  2. VFEND [Suspect]
     Dosage: 200 MG, 2X/DAY
     Route: 048
     Dates: start: 20130217
  3. PLETAAL [Concomitant]
     Dosage: 100 MG, 2X/DAY
     Route: 048
     Dates: start: 20130121
  4. SYMMETREL [Concomitant]
     Dosage: 50 MG, 2X/DAY
     Route: 048
     Dates: start: 20130121
  5. PARIET [Concomitant]
     Dosage: 10 MG, 1X/DAY
     Route: 048
     Dates: start: 20110428
  6. IMIDAPRIL HYDROCHLORIDE [Concomitant]
     Dosage: 5 MG, 1X/DAY
     Route: 048
     Dates: start: 20130110
  7. MEMARY [Concomitant]
     Dosage: 20 MG, 1X/DAY
     Route: 048
     Dates: start: 20111022
  8. ARICEPT [Concomitant]
     Dosage: 10 MG, 1X/DAY
     Route: 048
     Dates: start: 20111022
  9. OPALMON [Concomitant]
     Dosage: 5 MG, 3X/DAY
     Route: 048
     Dates: start: 20130115
  10. JUVELA NICOTINATE [Concomitant]
     Dosage: 100 MG, 3X/DAY
     Route: 048
     Dates: start: 20130115
  11. CARBOCISTEINE [Concomitant]
     Dosage: 500 MG, 3X/DAY
     Route: 048
     Dates: start: 20130121
  12. FUZULEBAN [Concomitant]
     Dosage: 45 MG, 1X/DAY
     Route: 048
     Dates: start: 20120920

REACTIONS (2)
  - Vomiting [Fatal]
  - Extrapyramidal disorder [Fatal]
